FAERS Safety Report 14004884 (Version 2)
Quarter: 2017Q4

REPORT INFORMATION
  Report Type: Spontaneous
  Country: US (occurrence: US)
  Receive Date: 20170922
  Receipt Date: 20171011
  Transmission Date: 20180321
  Serious: No
  Sender: FDA-Public Use
  Company Number: US-PFIZER INC-2017407509

PATIENT
  Sex: Female

DRUGS (2)
  1. CLINORIL [Suspect]
     Active Substance: SULINDAC
     Dosage: UNK
  2. LORABID [Suspect]
     Active Substance: LORACARBEF
     Dosage: UNK

REACTIONS (1)
  - Drug hypersensitivity [Unknown]
